FAERS Safety Report 5306941-5 (Version None)
Quarter: 2007Q2

REPORT INFORMATION
  Report Type: 
  Country: None (occurrence: None)
  Receive Date: 20070425
  Receipt Date: 20070416
  Transmission Date: 20071010
  Serious: Yes (Hospitalization)
  Sender: FDA-Public Use
  Company Number: BR-ABBOTT-07P-020-0365250-00

PATIENT
  Age: 52 Year
  Sex: Male

DRUGS (8)
  1. DEPAKOTE ER [Suspect]
     Indication: EPILEPSY
     Route: 048
     Dates: start: 20070101
  2. DEPAKOTE ER [Suspect]
     Indication: BIPOLAR DISORDER
  3. ALDOL [Concomitant]
     Indication: EPILEPSY
     Route: 048
     Dates: start: 20070201
  4. ALDOL [Concomitant]
     Indication: BIPOLAR DISORDER
  5. BIPERIDEN HYDROCHLORIDE TAB [Concomitant]
     Indication: EPILEPSY
     Route: 048
     Dates: start: 20070201
  6. BIPERIDEN HYDROCHLORIDE TAB [Concomitant]
     Indication: BIPOLAR DISORDER
  7. CLONAZEPAM [Concomitant]
     Indication: EPILEPSY
     Route: 048
     Dates: start: 20070201
  8. CLONAZEPAM [Concomitant]
     Indication: BIPOLAR DISORDER

REACTIONS (2)
  - INVESTIGATION ABNORMAL [None]
  - SOMNOLENCE [None]
